FAERS Safety Report 7536435-8 (Version None)
Quarter: 2011Q2

REPORT INFORMATION
  Report Type: 
  Country: None (occurrence: None)
  Receive Date: 20110602
  Receipt Date: 20110523
  Transmission Date: 20111010
  Serious: Yes (Hospitalization)
  Sender: FDA-Public Use
  Company Number: LTI2011A00127

PATIENT
  Age: 80 Year
  Sex: Female

DRUGS (6)
  1. EXFORGE (VALSARTAN) [Concomitant]
  2. SYNEDIL (SULPIRIDE) [Concomitant]
  3. LEVOTHYROXINE SODIUM [Concomitant]
  4. XANAX [Concomitant]
  5. PROTHIADEN (DOSULEPIN HYDROCHLORIDE) [Concomitant]
  6. PIOGLITAZONE HYDROCHLORIDE/METFORMIN HYDROCHLORIDE [Suspect]
     Indication: TYPE 2 DIABETES MELLITUS
     Dosage: 2 TAB. (1 TAB., 2 IN 1 D) ORAL
     Route: 048
     Dates: start: 20101101, end: 20110503

REACTIONS (2)
  - ABDOMINAL DISTENSION [None]
  - CARDIAC FAILURE [None]
